FAERS Safety Report 13329793 (Version 1)
Quarter: 2017Q1

REPORT INFORMATION
  Report Type: Spontaneous
  Country: MA (occurrence: MA)
  Receive Date: 20170313
  Receipt Date: 20170313
  Transmission Date: 20170428
  Serious: Yes (Other)
  Sender: FDA-Public Use
  Company Number: MA-HQ SPECIALTY-MA-2017INT000060

PATIENT
  Age: 43 Year
  Sex: Female

DRUGS (2)
  1. 5 FLUORO URACIL [Suspect]
     Active Substance: FLUOROURACIL
     Indication: METAPLASTIC BREAST CARCINOMA
     Dosage: 400 MG/M2, QD FOR 3 DAYS, EVERY 3 WEEKS
  2. CISPLATIN. [Suspect]
     Active Substance: CISPLATIN
     Indication: METAPLASTIC BREAST CARCINOMA
     Dosage: 75 MG/M2, AS A 1-HOUR INTRAVENOUS INFUSION ON DAY 1, EVERY 3 WEEKS
     Route: 042

REACTIONS (2)
  - Febrile neutropenia [Recovering/Resolving]
  - Vomiting [Recovering/Resolving]
